FAERS Safety Report 6717882-0 (Version None)
Quarter: 2010Q2

REPORT INFORMATION
  Report Type: 
  Country: None (occurrence: None)
  Receive Date: 20100507
  Receipt Date: 20100507
  Transmission Date: 20101027
  Serious: Yes (Hospitalization)
  Sender: FDA-Public Use
  Company Number: None

PATIENT
  Sex: Female
  Weight: 69.6 kg

DRUGS (5)
  1. CYCLOPHOSPHAMIDE [Suspect]
     Dosage: 1260 MG
  2. DOXORUBICIN HCL [Suspect]
     Dosage: 84 MG
  3. PREDNISONE [Suspect]
     Dosage: 70 MG
  4. RITUXIMAB (MOAB C2B8 ANTI CD20, CHIMERIC) [Suspect]
     Dosage: 630 MG
  5. VINCRISTINE SULFATE [Suspect]
     Dosage: 2 MG

REACTIONS (3)
  - CONFUSIONAL STATE [None]
  - NEUTROPENIA [None]
  - URINARY TRACT INFECTION [None]
